FAERS Safety Report 9911447 (Version 1)
Quarter: 2014Q1

REPORT INFORMATION
  Report Type: Spontaneous
  Country: JP (occurrence: JP)
  Receive Date: 20140219
  Receipt Date: 20140219
  Transmission Date: 20141002
  Serious: Yes (Other)
  Sender: FDA-Public Use
  Company Number: PHHY2014JP017568

PATIENT
  Age: 2 Year
  Sex: Female

DRUGS (11)
  1. CICLOSPORIN [Suspect]
     Indication: NEPHROTIC SYNDROME
     Route: 048
  2. METHYLPREDNISOLONE [Suspect]
     Indication: NEPHROTIC SYNDROME
     Dosage: 30 MG/KG/DAY
     Route: 042
  3. PREDNISOLONE [Suspect]
     Indication: NEPHROTIC SYNDROME
     Route: 048
  4. MIZORIBINE [Suspect]
  5. RITUXIMAB [Suspect]
     Indication: NEPHROTIC SYNDROME
  6. MYCOPHENOLATE MOFETIL [Concomitant]
  7. ANGIOTENSIN CONVERTING ENZYME BLOCKERS [Concomitant]
  8. ALBUMIN [Concomitant]
     Indication: OEDEMA
  9. METHYLPREDNISOLONE [Concomitant]
  10. ACETAMINOPHEN [Concomitant]
     Route: 048
  11. CHLORPHENIRAMINE MALEATE [Concomitant]

REACTIONS (2)
  - Nephrotic syndrome [Unknown]
  - Drug resistance [Unknown]
